FAERS Safety Report 4510774-7 (Version None)
Quarter: 2004Q4

REPORT INFORMATION
  Report Type: 
  Country: None (occurrence: None)
  Receive Date: 20041124
  Receipt Date: 20040914
  Transmission Date: 20050328
  Serious: Yes (Hospitalization, Disabling)
  Sender: FDA-Public Use
  Company Number: US-MERCK-0409USA01298

PATIENT
  Age: 65 Year
  Sex: Female

DRUGS (2)
  1. SINGULAIR [Suspect]
     Indication: ASTHMA
     Route: 048
     Dates: start: 20040101
  2. CORTICOSTEROIDS (UNSPECIFIED) [Concomitant]
     Route: 055

REACTIONS (4)
  - ABASIA [None]
  - ALLERGIC GRANULOMATOUS ANGIITIS [None]
  - MUSCULAR WEAKNESS [None]
  - NEUROPATHY PERIPHERAL [None]
